FAERS Safety Report 4587452-1 (Version None)
Quarter: 2005Q1

REPORT INFORMATION
  Report Type: 
  Country: None (occurrence: None)
  Receive Date: 20050215
  Receipt Date: 20050201
  Transmission Date: 20050727
  Serious: Yes (Other)
  Sender: FDA-Public Use
  Company Number: S05-FRA-00510-01

PATIENT
  Age: 83 Year
  Sex: Female

DRUGS (4)
  1. MEMANTINE HCL [Suspect]
     Indication: DEMENTIA
     Dosage: 10 MG BID PO
     Route: 048
     Dates: start: 20030204, end: 20041220
  2. PAROXETINE HCL [Concomitant]
  3. ZESTRIL [Concomitant]
  4. NITROGLYCERIN [Concomitant]

REACTIONS (2)
  - GRAND MAL CONVULSION [None]
  - TEMPORAL LOBE EPILEPSY [None]
